FAERS Safety Report 6673646-8 (Version None)
Quarter: 2010Q2

REPORT INFORMATION
  Report Type: 
  Country: None (occurrence: None)
  Receive Date: 20100408
  Receipt Date: 20100329
  Transmission Date: 20101027
  Serious: Yes (Other)
  Sender: FDA-Public Use
  Company Number: US-CELGENEUS-163-21880-10010825

PATIENT
  Sex: Female

DRUGS (10)
  1. REVLIMID [Suspect]
     Route: 048
     Dates: start: 20091117, end: 20100112
  2. PROCRIT [Concomitant]
     Indication: DRUG USE FOR UNKNOWN INDICATION
     Dosage: 60,000 UNITS
     Route: 065
     Dates: start: 20100112
  3. MULTI-VITAMIN [Concomitant]
     Indication: DRUG USE FOR UNKNOWN INDICATION
     Route: 065
     Dates: start: 20100112
  4. DIGOXIN [Concomitant]
     Indication: DRUG USE FOR UNKNOWN INDICATION
     Route: 065
     Dates: start: 20100112
  5. METOPROLOL TARTRATE [Concomitant]
     Indication: DRUG USE FOR UNKNOWN INDICATION
     Route: 065
     Dates: start: 20100112
  6. HYDROCHLOROTHIAZIDE [Concomitant]
     Indication: DRUG USE FOR UNKNOWN INDICATION
     Route: 065
     Dates: start: 20100112
  7. TYLENOL-500 [Concomitant]
     Indication: PAIN
     Route: 065
     Dates: start: 20100112
  8. DARVOCET [Concomitant]
     Indication: PAIN
     Dosage: ONE TABLET
     Route: 048
     Dates: start: 20100112
  9. VITAMIN B-12 [Concomitant]
     Indication: DRUG USE FOR UNKNOWN INDICATION
     Route: 048
     Dates: start: 20100112
  10. IMODIUM [Concomitant]
     Indication: DRUG USE FOR UNKNOWN INDICATION
     Route: 065
     Dates: start: 20100112

REACTIONS (5)
  - ANAEMIA [None]
  - DIARRHOEA [None]
  - FATIGUE [None]
  - HALLUCINATION, VISUAL [None]
  - NERVOUSNESS [None]
